FAERS Safety Report 16259312 (Version 5)
Quarter: 2021Q4

REPORT INFORMATION
  Report Type: Spontaneous
  Country: US (occurrence: US)
  Receive Date: 20190501
  Receipt Date: 20211026
  Transmission Date: 20220303
  Serious: Yes (Other)
  Sender: FDA-Public Use
  Company Number: 2019SE11217

PATIENT
  Age: 66 Year
  Sex: Male
  Weight: 90 kg

DRUGS (25)
  1. NEXIUM [Suspect]
     Active Substance: ESOMEPRAZOLE MAGNESIUM
     Indication: Barrett^s oesophagus
     Route: 048
     Dates: start: 20070517
  2. NEXIUM [Suspect]
     Active Substance: ESOMEPRAZOLE MAGNESIUM
     Indication: Gastrooesophageal reflux disease
     Route: 048
     Dates: start: 20070517
  3. NEXIUM [Suspect]
     Active Substance: ESOMEPRAZOLE MAGNESIUM
     Indication: Barrett^s oesophagus
     Dosage: GENERIC
     Route: 065
  4. NEXIUM [Suspect]
     Active Substance: ESOMEPRAZOLE MAGNESIUM
     Indication: Gastrooesophageal reflux disease
     Dosage: GENERIC
     Route: 065
  5. PREVACID [Suspect]
     Active Substance: LANSOPRAZOLE
     Indication: Barrett^s oesophagus
     Route: 065
     Dates: start: 20110727
  6. PREVACID [Suspect]
     Active Substance: LANSOPRAZOLE
     Indication: Gastrooesophageal reflux disease
     Route: 065
     Dates: start: 20110727
  7. PROTONIX [Suspect]
     Active Substance: PANTOPRAZOLE SODIUM
     Indication: Gastrooesophageal reflux disease
     Route: 065
     Dates: start: 20150519
  8. PEPCID AC [Concomitant]
     Active Substance: FAMOTIDINE
  9. ZANTAC [Concomitant]
     Active Substance: RANITIDINE HYDROCHLORIDE
  10. TUMS [Concomitant]
     Active Substance: CALCIUM CARBONATE
  11. ANUSOL NOS [Concomitant]
     Active Substance: BALSAM PERU\BENZYL BENZOATE\BISMUTH HYDROXIDE\BISMUTH SUBGALLATE\HYDROCORTISONE ACETATE\ZINC OXIDE
  12. CARTIA [Concomitant]
  13. CARVEDILOL [Concomitant]
     Active Substance: CARVEDILOL
  14. CIPROFLOXACIN [Concomitant]
     Active Substance: CIPROFLOXACIN
  15. FLONASE [Concomitant]
     Active Substance: FLUTICASONE PROPIONATE
  16. DYMISTA [Concomitant]
     Active Substance: AZELASTINE HYDROCHLORIDE\FLUTICASONE PROPIONATE
  17. MUPIROCIN [Concomitant]
     Active Substance: MUPIROCIN
  18. XANAX [Concomitant]
     Active Substance: ALPRAZOLAM
  19. PATADAY [Concomitant]
     Active Substance: OLOPATADINE HYDROCHLORIDE
  20. NITROSTAT [Concomitant]
     Active Substance: NITROGLYCERIN
  21. WARFARIN [Concomitant]
     Active Substance: WARFARIN
  22. LANTUS [Concomitant]
     Active Substance: INSULIN GLARGINE
  23. NOVOLOG [Concomitant]
     Active Substance: INSULIN ASPART
  24. CEFTRIAXONE [Concomitant]
     Active Substance: CEFTRIAXONE
  25. TORSEMIDE [Concomitant]
     Active Substance: TORSEMIDE

REACTIONS (7)
  - Acute kidney injury [Not Recovered/Not Resolved]
  - End stage renal disease [Unknown]
  - Chronic kidney disease [Not Recovered/Not Resolved]
  - Renal failure [Unknown]
  - Renal injury [Unknown]
  - Nephrogenic anaemia [Unknown]
  - Rebound acid hypersecretion [Unknown]

NARRATIVE: CASE EVENT DATE: 20140101
